FAERS Safety Report 4943221-1 (Version None)
Quarter: 2006Q1

REPORT INFORMATION
  Report Type: 
  Country: None (occurrence: None)
  Receive Date: 20060215
  Receipt Date: 20060202
  Transmission Date: 20060701
  Serious: Yes (Other)
  Sender: FDA-Public Use
  Company Number: GBWYE359902FEB06

PATIENT
  Age: 4 Year
  Sex: Male

DRUGS (1)
  1. REFACTO [Suspect]

REACTIONS (2)
  - ANTI FACTOR VIII ANTIBODY POSITIVE [None]
  - FACTOR VIII INHIBITION [None]
